FAERS Safety Report 22163363 (Version 2)
Quarter: 2023Q2

REPORT INFORMATION
  Report Type: Spontaneous
  Country: CA (occurrence: CA)
  Receive Date: 20230401
  Receipt Date: 20230515
  Transmission Date: 20230721
  Serious: Yes (Hospitalization, Other)
  Sender: FDA-Public Use
  Company Number: None

PATIENT
  Age: 77 Year
  Sex: Female

DRUGS (60)
  1. NITROGLYCERIN [Suspect]
     Active Substance: NITROGLYCERIN
     Indication: Product used for unknown indication
     Route: 065
  2. ACEBUTOLOL HYDROCHLORIDE [Suspect]
     Active Substance: ACEBUTOLOL HYDROCHLORIDE
     Indication: Product used for unknown indication
     Route: 065
  3. ACETAMINOPHEN [Suspect]
     Active Substance: ACETAMINOPHEN
     Indication: Product used for unknown indication
     Dosage: NOT SPECIFIED
     Route: 065
  4. ACETAMINOSALOL\ASPIRIN\CAFFEINE [Suspect]
     Active Substance: ACETAMINOSALOL\ASPIRIN\CAFFEINE
     Indication: Product used for unknown indication
     Route: 065
  5. ASPIRIN [Suspect]
     Active Substance: ASPIRIN
     Indication: Product used for unknown indication
     Dosage: NOT SPECIFIED
     Route: 065
  6. ASPIRIN\CAFFEINE [Suspect]
     Active Substance: ASPIRIN\CAFFEINE
     Indication: Product used for unknown indication
  7. AGGRENOX [Suspect]
     Active Substance: ASPIRIN\DIPYRIDAMOLE
     Indication: Cerebrovascular accident
     Dosage: 1.0 DOSAGE FORMS, CAPSULE (IMMEDIATE AND?EXTENDED?RELEASE)
     Route: 065
  8. AMITRIPTYLINE HYDROCHLORIDE [Suspect]
     Active Substance: AMITRIPTYLINE HYDROCHLORIDE
     Indication: Product used for unknown indication
     Route: 065
  9. AMLODIPINE BESYLATE [Suspect]
     Active Substance: AMLODIPINE BESYLATE
     Indication: Product used for unknown indication
     Route: 065
  10. DILTIAZEM HYDROCHLORIDE [Suspect]
     Active Substance: DILTIAZEM HYDROCHLORIDE
     Indication: Product used for unknown indication
     Dosage: NOT SPECIFIED
     Route: 065
  11. BISACODYL [Suspect]
     Active Substance: BISACODYL
     Indication: Constipation
     Dosage: 1.0 DOSAGE FORMS, NOT SPECIFIED, 1 EVERY 1 DAYS
     Route: 065
  12. CALCIUM [Suspect]
     Active Substance: CALCIUM
     Indication: Product used for unknown indication
     Dosage: NOT SPECIFIED
     Route: 065
  13. CARBAMAZEPINE [Suspect]
     Active Substance: CARBAMAZEPINE
     Indication: Product used for unknown indication
     Dosage: NOT SPECIFIED
     Route: 065
  14. CYCLOBENZAPRINE [Suspect]
     Active Substance: CYCLOBENZAPRINE
     Indication: Product used for unknown indication
     Route: 065
  15. DILTIAZEM [Suspect]
     Active Substance: DILTIAZEM
     Indication: Hypertension
     Dosage: 1 EVERY 1 DAYS
     Route: 065
  16. DILTIAZEM HYDROCHLORIDE [Suspect]
     Active Substance: DILTIAZEM HYDROCHLORIDE
     Indication: Product used for unknown indication
     Route: 065
  17. DIPYRIDAMOLE [Suspect]
     Active Substance: DIPYRIDAMOLE
     Indication: Product used for unknown indication
     Dosage: NOT SPECIFIED
     Route: 065
  18. FUROSEMIDE [Suspect]
     Active Substance: FUROSEMIDE
     Indication: Product used for unknown indication
     Dosage: NOT SPECIFIED
     Route: 065
  19. GALANTAMINE [Suspect]
     Active Substance: GALANTAMINE
     Indication: Product used for unknown indication
     Dosage: NOT SPECIFIED
     Route: 065
  20. GLUCOSAMINE [Suspect]
     Active Substance: GLUCOSAMINE
     Indication: Product used for unknown indication
     Dosage: NOT SPECIFIED
     Route: 065
  21. LACTULOSE [Suspect]
     Active Substance: LACTULOSE
     Indication: Product used for unknown indication
     Route: 065
  22. LEVOFLOXACIN [Suspect]
     Active Substance: LEVOFLOXACIN
     Indication: Product used for unknown indication
     Dosage: NOT SPECIFIED
     Route: 065
  23. LEVOFLOXACIN HEMIHYDRATE [Suspect]
     Active Substance: LEVOFLOXACIN
     Indication: Product used for unknown indication
     Dosage: NOT SPECIFIED
     Route: 065
  24. LEVALBUTEROL [Suspect]
     Active Substance: LEVALBUTEROL
     Indication: Product used for unknown indication
     Route: 065
  25. LEVOTHYROXINE SODIUM [Suspect]
     Active Substance: LEVOTHYROXINE SODIUM
     Indication: Product used for unknown indication
     Dosage: NOT SPECIFIED
     Route: 065
  26. MAGNESIUM HYDROXIDE [Suspect]
     Active Substance: MAGNESIUM HYDROXIDE
     Indication: Product used for unknown indication
     Route: 065
  27. MORPHINE SULFATE [Suspect]
     Active Substance: MORPHINE SULFATE
     Indication: Pain
     Dosage: NOT SPECIFIED
     Route: 065
  28. OMEPRAZOLE [Suspect]
     Active Substance: OMEPRAZOLE
     Indication: Duodenal ulcer
     Dosage: NOT SPECIFIED
     Route: 048
  29. OXAZEPAM [Suspect]
     Active Substance: OXAZEPAM
     Indication: Cerebrovascular accident
     Route: 065
  30. PERSANTINE [Suspect]
     Active Substance: DIPYRIDAMOLE
     Indication: Product used for unknown indication
     Dosage: NOT SPECIFIED
     Route: 065
  31. QUINAPRIL HYDROCHLORIDE [Suspect]
     Active Substance: QUINAPRIL HYDROCHLORIDE
     Indication: Hypertension
     Route: 065
  32. ROSUVASTATIN CALCIUM [Suspect]
     Active Substance: ROSUVASTATIN CALCIUM
     Indication: Product used for unknown indication
     Route: 048
  33. ALBUTEROL [Suspect]
     Active Substance: ALBUTEROL
     Indication: Product used for unknown indication
     Dosage: NOT SPECIFIED
     Route: 065
  34. SPIRIVA [Suspect]
     Active Substance: TIOTROPIUM BROMIDE MONOHYDRATE
     Indication: Product used for unknown indication
     Dosage: NOT SPECIFIED
     Route: 065
  35. ASPIRIN [Concomitant]
     Active Substance: ASPIRIN
     Indication: Product used for unknown indication
     Dosage: NOT SPECIFIED
     Route: 048
  36. CALCIUM ASCORBATE [Concomitant]
     Active Substance: CALCIUM ASCORBATE
     Indication: Product used for unknown indication
     Dosage: NOT SPECIFIED
     Route: 065
  37. CRANBERRY [Concomitant]
     Active Substance: CRANBERRY
     Indication: Product used for unknown indication
     Route: 065
  38. GLYCERIN\POTASSIUM [Concomitant]
     Active Substance: GLYCERIN\POTASSIUM
     Indication: Product used for unknown indication
     Route: 065
  39. GLYCERIN [Concomitant]
     Active Substance: GLYCERIN
     Indication: Product used for unknown indication
     Route: 065
  40. PHOSPHORIC ACID [Concomitant]
     Active Substance: PHOSPHORIC ACID
     Indication: Product used for unknown indication
     Route: 065
  41. HERBALS\PLANTAGO OVATA LEAF [Concomitant]
     Active Substance: HERBALS\PLANTAGO OVATA LEAF
     Indication: Product used for unknown indication
     Route: 065
  42. CALCIUM POLYCARBOPHIL [Concomitant]
     Active Substance: CALCIUM POLYCARBOPHIL
     Indication: Product used for unknown indication
     Route: 065
  43. POTASSIUM SORBATE [Concomitant]
     Active Substance: POTASSIUM SORBATE
     Indication: Product used for unknown indication
     Route: 065
  44. SODIUM BENZOATE [Concomitant]
     Active Substance: SODIUM BENZOATE
     Indication: Product used for unknown indication
     Dosage: NOT SPECIFIED
     Route: 065
  45. TIOTROPIUM BROMIDE MONOHYDRATE [Concomitant]
     Active Substance: TIOTROPIUM BROMIDE MONOHYDRATE
     Indication: Product used for unknown indication
     Dosage: NOT SPECIFIED
     Route: 065
  46. DILTIAZEM [Suspect]
     Active Substance: DILTIAZEM
     Indication: Coronary artery disease
     Route: 065
  47. DILTIAZEM [Suspect]
     Active Substance: DILTIAZEM
     Indication: Angina pectoris
     Route: 065
  48. MORPHINE SULFATE [Suspect]
     Active Substance: MORPHINE SULFATE
     Indication: Fibromyalgia
     Dosage: NOT SPECIFIED
     Route: 065
  49. QUINAPRIL HYDROCHLORIDE [Suspect]
     Active Substance: QUINAPRIL HYDROCHLORIDE
     Indication: Coronary artery disease
     Route: 065
  50. QUINAPRIL HYDROCHLORIDE [Suspect]
     Active Substance: QUINAPRIL HYDROCHLORIDE
     Indication: Angina pectoris
     Route: 065
  51. CARBAMAZEPINE [Suspect]
     Active Substance: CARBAMAZEPINE
     Indication: Product used for unknown indication
     Route: 065
  52. DILTIAZEM [Suspect]
     Active Substance: DILTIAZEM
     Indication: Hypertension
     Dosage: NOT SPECIFIED
     Route: 065
  53. DILTIAZEM [Suspect]
     Active Substance: DILTIAZEM
     Indication: Coronary artery disease
     Dosage: NOT SPECIFIED
     Route: 065
  54. DILTIAZEM [Suspect]
     Active Substance: DILTIAZEM
     Indication: Angina pectoris
     Dosage: NOT SPECIFIED
     Route: 065
  55. MORPHINE SULFATE [Suspect]
     Active Substance: MORPHINE SULFATE
     Indication: Pain
     Route: 065
  56. MORPHINE SULFATE [Suspect]
     Active Substance: MORPHINE SULFATE
     Indication: Fibromyalgia
     Route: 065
  57. OXAZEPAM [Suspect]
     Active Substance: OXAZEPAM
     Indication: Product used for unknown indication
     Route: 065
  58. QUINAPRIL HYDROCHLORIDE [Suspect]
     Active Substance: QUINAPRIL HYDROCHLORIDE
     Indication: Hypertension
     Route: 065
  59. QUINAPRIL HYDROCHLORIDE [Suspect]
     Active Substance: QUINAPRIL HYDROCHLORIDE
     Indication: Coronary artery disease
     Route: 065
  60. QUINAPRIL HYDROCHLORIDE [Suspect]
     Active Substance: QUINAPRIL HYDROCHLORIDE
     Indication: Angina pectoris
     Route: 065

REACTIONS (14)
  - Blood calcium decreased [Unknown]
  - Cognitive disorder [Unknown]
  - Creatinine renal clearance decreased [Unknown]
  - Depressed level of consciousness [Unknown]
  - Fall [Unknown]
  - Hypotension [Unknown]
  - Mobility decreased [Unknown]
  - Orthostatic hypotension [Unknown]
  - Pain [Unknown]
  - Sedation [Unknown]
  - Sedation complication [Unknown]
  - Toxicity to various agents [Unknown]
  - Constipation [Unknown]
  - Balance disorder [Unknown]
